FAERS Safety Report 24677530 (Version 7)
Quarter: 2025Q1

REPORT INFORMATION
  Report Type: Spontaneous
  Country: BR (occurrence: BR)
  Receive Date: 20241129
  Receipt Date: 20250122
  Transmission Date: 20250408
  Serious: Yes (Hospitalization, Disabling, Other)
  Sender: SANOFI AVENTIS
  Company Number: BR-SA-2024SA349345

PATIENT
  Age: 4 Year
  Sex: Male
  Weight: 14.35 kg

DRUGS (9)
  1. DUPIXENT [Suspect]
     Active Substance: DUPILUMAB
     Indication: Dermatitis atopic
     Dosage: 200 MG, Q4W
     Route: 058
     Dates: start: 20240731, end: 2024
  2. DUPIXENT [Suspect]
     Active Substance: DUPILUMAB
     Dosage: 300 MG, QM
     Route: 058
     Dates: start: 2024, end: 2024
  3. BUDESONIDE [Concomitant]
     Active Substance: BUDESONIDE
     Indication: Hypersensitivity
  4. BUDESONIDE [Concomitant]
     Active Substance: BUDESONIDE
     Indication: Rhinitis
  5. BECLOMETHASONE DIPROPIONATE [Concomitant]
     Active Substance: BECLOMETHASONE DIPROPIONATE
     Indication: Asthma
     Dosage: 50 MG, Q6H (4 TIMES EVERY DAY)
  6. BECLOMETHASONE DIPROPIONATE [Concomitant]
     Active Substance: BECLOMETHASONE DIPROPIONATE
     Dosage: 50 MG
  7. ALBUTEROL [Concomitant]
     Active Substance: ALBUTEROL
     Indication: Asthma
  8. ALBUTEROL [Concomitant]
     Active Substance: ALBUTEROL
  9. ALBUTEROL [Concomitant]
     Active Substance: ALBUTEROL

REACTIONS (19)
  - Hemiparesis [Recovering/Resolving]
  - Paraparesis [Recovered/Resolved]
  - Monoparesis [Recovered/Resolved]
  - Ischaemic stroke [Not Recovered/Not Resolved]
  - Limb immobilisation [Recovering/Resolving]
  - Decreased activity [Recovered/Resolved]
  - Fall [Unknown]
  - Ischaemia [Unknown]
  - Carotid artery occlusion [Unknown]
  - Cortical laminar necrosis [Unknown]
  - Cerebral microhaemorrhage [Unknown]
  - Ischaemic cerebral infarction [Unknown]
  - Pericardial effusion [Unknown]
  - Internal carotid artery deformity [Unknown]
  - Eczema [Unknown]
  - Skin lesion [Unknown]
  - Muscular weakness [Unknown]
  - Inappropriate schedule of product administration [Unknown]
  - Incorrect dose administered [Unknown]

NARRATIVE: CASE EVENT DATE: 20240101
